FAERS Safety Report 4676390-1 (Version None)
Quarter: 2005Q2

REPORT INFORMATION
  Report Type: 
  Country: None (occurrence: None)
  Receive Date: 20050527
  Receipt Date: 20050303
  Transmission Date: 20051028
  Serious: No
  Sender: FDA-Public Use
  Company Number: US-GLAXOSMITHKLINE-A0548192A

PATIENT
  Sex: Female

DRUGS (2)
  1. WELLBUTRIN XL [Suspect]
     Indication: DEPRESSION
     Dosage: 150MG PER DAY
     Route: 048
     Dates: start: 20050218
  2. NO CONCURRENT MEDICATION [Concomitant]

REACTIONS (6)
  - AGITATION [None]
  - INSOMNIA [None]
  - MOUTH ULCERATION [None]
  - RASH [None]
  - TINNITUS [None]
  - URTICARIA [None]
